FAERS Safety Report 6614275-1 (Version None)
Quarter: 2010Q1

REPORT INFORMATION
  Report Type: 
  Country: None (occurrence: None)
  Receive Date: 20100304
  Receipt Date: 20100225
  Transmission Date: 20100710
  Serious: Yes (Death)
  Sender: FDA-Public Use
  Company Number: US-BAXTER-2010BH003238

PATIENT
  Sex: Male

DRUGS (1)
  1. DIANEAL [Suspect]
     Indication: PERITONEAL DIALYSIS
     Route: 033
     Dates: start: 20100121, end: 20100126

REACTIONS (4)
  - CACHEXIA [None]
  - CARDIAC ARREST [None]
  - CARDIOMYOPATHY [None]
  - FAILURE TO THRIVE [None]
